FAERS Safety Report 20974076 (Version 1)
Quarter: 2022Q2

REPORT INFORMATION
  Report Type: Spontaneous
  Country: CN (occurrence: CN)
  Receive Date: 20220617
  Receipt Date: 20220617
  Transmission Date: 20220721
  Serious: Yes (Hospitalization)
  Sender: FDA-Public Use
  Company Number: None

PATIENT
  Age: 48 Year
  Sex: Female
  Weight: 54 kg

DRUGS (10)
  1. CYCLOPHOSPHAMIDE [Suspect]
     Active Substance: CYCLOPHOSPHAMIDE
     Indication: Breast cancer female
     Dosage: 0.93 G, Q21D, INJECTION, CYCLOPHOSPHAMIDE (0.93G) + NS (500ML) VD ONCE FOR CHEMOTHERAPY, 21D A CYCLE
     Route: 041
     Dates: start: 20220322, end: 20220524
  2. CYCLOPHOSPHAMIDE [Suspect]
     Active Substance: CYCLOPHOSPHAMIDE
     Dosage: DOSE RE-INTRODUCED Q21D, CYCLOPHOSPHAMIDE + NS VD ONCE, 21D A CYCLE
     Route: 041
  3. TAMOXIFEN CITRATE [Suspect]
     Active Substance: TAMOXIFEN CITRATE
     Indication: Breast cancer female
     Dosage: 20 MG, BID
     Route: 048
     Dates: start: 20220322, end: 20220524
  4. TAMOXIFEN CITRATE [Suspect]
     Active Substance: TAMOXIFEN CITRATE
     Dosage: DOSE RE-INTRODUCED, BID
     Route: 048
  5. DOXORUBICIN HYDROCHLORIDE [Suspect]
     Active Substance: DOXORUBICIN HYDROCHLORIDE
     Indication: Breast cancer female
     Dosage: 93 MG, Q21D, DOXORUBICIN HYDROCHLORIDE LIPOSOME (93MG) + NS (500ML) VD ONCE
     Route: 041
     Dates: start: 20220322, end: 20220524
  6. DOXORUBICIN HYDROCHLORIDE [Suspect]
     Active Substance: DOXORUBICIN HYDROCHLORIDE
     Dosage: DOSE RE-INTRODUCED, Q21D, DOXORUBICIN HYDROCHLORIDE LIPOSOME + NS VD ONCE
     Route: 041
  7. SODIUM CHLORIDE [Suspect]
     Active Substance: SODIUM CHLORIDE
     Indication: Medication dilution
     Dosage: 500 ML, Q21D, DOXORUBICIN HYDROCHLORIDE LIPOSOME (93MG) + NS (500ML) VD ONCE
     Route: 041
     Dates: start: 20220322, end: 20220524
  8. SODIUM CHLORIDE [Suspect]
     Active Substance: SODIUM CHLORIDE
     Dosage: DOSE RE-INTRODUCED, Q21D, DOXORUBICIN HYDROCHLORIDE LIPOSOME + NS VD ONCE
     Route: 041
  9. SODIUM CHLORIDE [Suspect]
     Active Substance: SODIUM CHLORIDE
     Dosage: 500 ML, Q21D, CYCLOPHOSPHAMIDE (0.93G) + NS (500ML) VD ONCE FOR CHEMOTHERAPY, 21D A CYCLE
     Route: 041
     Dates: start: 20220322, end: 20220524
  10. SODIUM CHLORIDE [Suspect]
     Active Substance: SODIUM CHLORIDE
     Dosage: DOSE RE-INTRODUCED Q21D, CYCLOPHOSPHAMIDE + NS VD ONCE, 21D A CYCLE
     Route: 041

REACTIONS (5)
  - Drug eruption [Recovering/Resolving]
  - Papule [Recovering/Resolving]
  - Skin erosion [Recovering/Resolving]
  - Erythema [Recovering/Resolving]
  - Rash [Recovering/Resolving]

NARRATIVE: CASE EVENT DATE: 20220501
